FAERS Safety Report 9298589 (Version 1)
Quarter: 2013Q2

REPORT INFORMATION
  Report Type: Spontaneous
  Country: US (occurrence: US)
  Receive Date: 20130520
  Receipt Date: 20130520
  Transmission Date: 20140414
  Serious: No
  Sender: FDA-Public Use
  Company Number: US-PFIZER INC-2013151099

PATIENT
  Sex: 0

DRUGS (1)
  1. PRISTIQ [Suspect]
     Dosage: UNK

REACTIONS (6)
  - Back injury [Unknown]
  - Insomnia [Unknown]
  - Headache [Unknown]
  - Elevated mood [Unknown]
  - Therapeutic response unexpected [Unknown]
  - Activities of daily living impaired [Unknown]
